FAERS Safety Report 11554421 (Version 1)
Quarter: 2015Q3

REPORT INFORMATION
  Report Type: Spontaneous
  Country: JP (occurrence: JP)
  Receive Date: 20150925
  Receipt Date: 20150925
  Transmission Date: 20151125
  Serious: Yes (Other)
  Sender: FDA-Public Use
  Company Number: JP-WARNER CHILCOTT, LLC-1042306

PATIENT
  Age: 84 Year
  Sex: Female

DRUGS (9)
  1. BLOPRESS [Concomitant]
     Active Substance: CANDESARTAN CILEXETIL
  2. VITAMIN D3 [Suspect]
     Active Substance: CHOLECALCIFEROL
     Route: 048
     Dates: end: 20140508
  3. TAKEPRON [Concomitant]
     Active Substance: LANSOPRAZOLE
  4. LASIX [Concomitant]
     Active Substance: FUROSEMIDE
  5. ACTONEL [Suspect]
     Active Substance: RISEDRONATE SODIUM
     Indication: OSTEOPOROSIS
     Route: 065
     Dates: start: 20131004, end: 20140904
  6. ARTIST [Concomitant]
     Active Substance: CARVEDILOL
  7. ZETIA [Concomitant]
     Active Substance: EZETIMIBE
  8. WARFARIN [Concomitant]
     Active Substance: WARFARIN
  9. LENDORMIN [Concomitant]
     Active Substance: BROTIZOLAM

REACTIONS (1)
  - Hypercalcaemia [Recovered/Resolved]

NARRATIVE: CASE EVENT DATE: 20140507
